FAERS Safety Report 20501895 (Version 1)
Quarter: 2022Q1

REPORT INFORMATION
  Report Type: Spontaneous
  Country: JP (occurrence: JP)
  Receive Date: 20220222
  Receipt Date: 20220222
  Transmission Date: 20220423
  Serious: Yes (Other)
  Sender: FDA-Public Use
  Company Number: JP-PFIZER INC-202200231345

PATIENT
  Age: 57 Year
  Sex: Male

DRUGS (6)
  1. IDARUBICIN HYDROCHLORIDE [Suspect]
     Active Substance: IDARUBICIN HYDROCHLORIDE
     Indication: Acute promyelocytic leukaemia
     Dosage: 12 MG/M2, DAILY
     Route: 042
  2. CYTARABINE [Suspect]
     Active Substance: CYTARABINE
     Indication: Acute promyelocytic leukaemia
     Dosage: 100 MG/M2, DAILY
     Route: 042
  3. TRETINOIN [Suspect]
     Active Substance: TRETINOIN
     Indication: Acute promyelocytic leukaemia
     Dosage: 45 MG/M2, DAILY
     Route: 048
  4. NAFAMOSTAT MESYLATE [Concomitant]
     Active Substance: NAFAMOSTAT MESYLATE
     Indication: Disseminated intravascular coagulation
     Dosage: 250 MG, DAILY
     Route: 042
  5. METHYLPREDNISOLONE [Concomitant]
     Active Substance: METHYLPREDNISOLONE
     Dosage: 500 MG, DAILY (FROM DAY 12)
     Route: 042
  6. ARSENIC TRIOXIDE [Concomitant]
     Active Substance: ARSENIC TRIOXIDE
     Dosage: 0.15 MG/KG, DAILY
     Route: 042

REACTIONS (5)
  - Pneumonia [Unknown]
  - Differentiation syndrome [Unknown]
  - Hypoxia [Unknown]
  - Haemoptysis [Unknown]
  - Dyspnoea [Unknown]
